FAERS Safety Report 9458065 (Version 1)
Quarter: 2013Q3

REPORT INFORMATION
  Report Type: Spontaneous
  Country: US (occurrence: US)
  Receive Date: 20130814
  Receipt Date: 20130814
  Transmission Date: 20140515
  Serious: Yes (Hospitalization)
  Sender: FDA-Public Use
  Company Number: US-SANOFI-AVENTIS-2013SA080496

PATIENT
  Age: 41 Year
  Sex: Male

DRUGS (2)
  1. AMBIEN [Suspect]
     Indication: BIPOLAR DISORDER
     Route: 065
  2. DEPAKOTE [Concomitant]
     Route: 065

REACTIONS (2)
  - Road traffic accident [Unknown]
  - Impaired driving ability [Unknown]
